FAERS Safety Report 9940724 (Version 1)
Quarter: 2014Q1

REPORT INFORMATION
  Report Type: Spontaneous
  Country: US (occurrence: US)
  Receive Date: 20140303
  Receipt Date: 20140303
  Transmission Date: 20141002
  Serious: No
  Sender: FDA-Public Use
  Company Number: US-TEVA-461610USA

PATIENT
  Age: 71 Year
  Sex: Male
  Weight: 33.14 kg

DRUGS (12)
  1. NUVIGIL [Suspect]
     Indication: ATTENTION DEFICIT/HYPERACTIVITY DISORDER
     Dates: start: 201311, end: 201312
  2. L-TYROSINE [Concomitant]
  3. WARFARIN [Concomitant]
     Dates: start: 201102
  4. AMIODARONE [Concomitant]
  5. TAMSULOSIN HCL [Concomitant]
  6. CHLORTHALIDONE [Concomitant]
  7. LISINOPRIL [Concomitant]
  8. AMLODIPINE BESYLATE [Concomitant]
  9. KLOR-CON 10 ER [Concomitant]
  10. CRESTOR [Concomitant]
  11. BYSTOLIC [Concomitant]
  12. ECOTRIN [Concomitant]
     Dosage: 81 MILLIGRAM DAILY;

REACTIONS (8)
  - Change in sustained attention [Recovered/Resolved]
  - Drug effect incomplete [Recovered/Resolved]
  - Increased appetite [Recovered/Resolved]
  - Adverse event [Recovered/Resolved]
  - Nervousness [Recovered/Resolved]
  - Decreased appetite [Recovered/Resolved]
  - Dry mouth [Recovered/Resolved]
  - Off label use [Recovered/Resolved]
